FAERS Safety Report 8814436 (Version 2)
Quarter: 2012Q4

REPORT INFORMATION
  Report Type: 
  Country: SE (occurrence: SE)
  Receive Date: 20120928
  Receipt Date: 20121105
  Transmission Date: 20130627
  Serious: Yes (Death, Hospitalization, Other)
  Sender: FDA-Public Use
  Company Number: SE-AMGEN-SWESP2011016076

PATIENT
  Age: 10 Year
  Sex: Male
  Weight: 33.6 kg

DRUGS (8)
  1. NPLATE [Suspect]
     Indication: IDIOPATHIC THROMBOCYTOPENIC PURPURA
     Dosage: 100 mug, qwk
     Route: 058
     Dates: start: 20110311, end: 20110318
  2. PROGRAF [Suspect]
     Indication: IMMUNOSUPPRESSANT DRUG THERAPY
     Dosage: 0.6 mg, bid
     Route: 048
     Dates: start: 20110504
  3. URSOFALK [Concomitant]
     Dosage: 13 ml, qd
     Route: 048
     Dates: end: 20110512
  4. NIFEDIPINE [Concomitant]
     Indication: HYPERTENSION
     Dosage: 3 ml, qid
     Route: 048
     Dates: end: 20110403
  5. NEXIUM                             /01479302/ [Concomitant]
     Indication: PROPHYLAXIS AGAINST GASTROINTESTINAL ULCER
     Dosage: 2.5 ml, bid
     Route: 042
     Dates: start: 20110309, end: 20110512
  6. CYKLOKAPRON [Concomitant]
     Indication: HAEMORRHAGE PROPHYLAXIS
     Dosage: 3 ml, tid
     Route: 042
     Dates: start: 20110309, end: 20110512
  7. PREDNISOLONE [Concomitant]
     Indication: PLATELET DISORDER
     Dosage: 10 ml, tid
     Route: 048
     Dates: start: 20110311, end: 20110512
  8. FURIX [Concomitant]
     Indication: DIURETIC THERAPY
     Dosage: 0.4 ml, UNK
     Route: 042
     Dates: start: 20110309, end: 20110512

REACTIONS (4)
  - Evans syndrome [Fatal]
  - Haemolytic anaemia [Fatal]
  - Bone marrow necrosis [Fatal]
  - Hyperammonaemic encephalopathy [Unknown]
